FAERS Safety Report 6647134-9 (Version None)
Quarter: 2010Q1

REPORT INFORMATION
  Report Type: 
  Country: None (occurrence: None)
  Receive Date: 20100323
  Receipt Date: 20100312
  Transmission Date: 20100710
  Serious: Yes (Other)
  Sender: FDA-Public Use
  Company Number: PHEH2010US03078

PATIENT
  Sex: Female

DRUGS (6)
  1. SANDOSTATIN LAR [Suspect]
     Dosage: UNK, UNK
     Route: 065
     Dates: start: 20000101
  2. SENNA [Concomitant]
     Dosage: UNK, UNK
     Route: 065
  3. NEXIUM [Concomitant]
     Dosage: 40 MG, UNK
     Route: 065
  4. DILTIAZEM HCL [Concomitant]
     Dosage: 120 MG, UNK
     Route: 065
  5. SPIRONOLACTONE [Concomitant]
     Dosage: 25 MG, UNK
     Route: 065
  6. DAILY VITAMINS [Concomitant]
     Dosage: UNK, UNK
     Route: 065

REACTIONS (10)
  - ALOPECIA [None]
  - CONSTIPATION [None]
  - DYSPHAGIA [None]
  - DYSPNOEA [None]
  - GASTROOESOPHAGEAL REFLUX DISEASE [None]
  - HEARING IMPAIRED [None]
  - MACULAR DEGENERATION [None]
  - URINARY TRACT INFECTION [None]
  - VERTIGO [None]
  - VISION BLURRED [None]
